FAERS Safety Report 25735021 (Version 1)
Quarter: 2025Q3

REPORT INFORMATION
  Report Type: Spontaneous
  Country: ID (occurrence: ID)
  Receive Date: 20250828
  Receipt Date: 20250828
  Transmission Date: 20251020
  Serious: Yes (Death)
  Sender: NOVARTIS
  Company Number: ID-002147023-NVSC2025ID134211

PATIENT

DRUGS (1)
  1. RIBOCICLIB [Suspect]
     Active Substance: RIBOCICLIB
     Indication: Product used for unknown indication
     Route: 065

REACTIONS (3)
  - Metastases to central nervous system [Fatal]
  - Metastases to liver [Fatal]
  - PIK3CA-activated mutation [Fatal]

NARRATIVE: CASE EVENT DATE: 20250820
